FAERS Safety Report 12329407 (Version 2)
Quarter: 2016Q2

REPORT INFORMATION
  Report Type: Report from Study
  Country: GB (occurrence: GB)
  Receive Date: 20160503
  Receipt Date: 20160511
  Transmission Date: 20160815
  Serious: Yes (Death, Hospitalization, Other)
  Sender: FDA-Public Use
  Company Number: GB-BRISTOL-MYERS SQUIBB COMPANY-BMS-2016-031764

PATIENT
  Age: 59 Year
  Sex: Male
  Weight: 75.7 kg

DRUGS (1)
  1. NIVOLUMAB [Suspect]
     Active Substance: NIVOLUMAB
     Indication: NON-SMALL CELL LUNG CANCER
     Dosage: 235 MG, UNK
     Route: 042
     Dates: start: 20160307

REACTIONS (2)
  - Malignant neoplasm progression [Fatal]
  - Haemoptysis [Fatal]

NARRATIVE: CASE EVENT DATE: 20160419
